FAERS Safety Report 15104991 (Version 1)
Quarter: 2018Q3

REPORT INFORMATION
  Report Type: Report from Study
  Country: US (occurrence: US)
  Receive Date: 20180703
  Receipt Date: 20180703
  Transmission Date: 20181010
  Serious: Yes (Hospitalization, Other)
  Sender: FDA-Public Use
  Company Number: US-ALEXION PHARMACEUTICALS INC.-A201808124

PATIENT
  Sex: Male

DRUGS (2)
  1. SUPLENA [Concomitant]
     Indication: PRODUCT USED FOR UNKNOWN INDICATION
     Dosage: UNK
     Route: 065
     Dates: start: 20180414
  2. SOLIRIS [Suspect]
     Active Substance: ECULIZUMAB
     Indication: ATYPICAL HAEMOLYTIC URAEMIC SYNDROME
     Dosage: 1200 MG, EVERY 14 DAYS
     Route: 042
     Dates: start: 20180117

REACTIONS (28)
  - Left ventricular hypertrophy [Unknown]
  - Procedural pain [Recovered/Resolved]
  - Citrobacter infection [Unknown]
  - Diarrhoea [Unknown]
  - Haemoglobin decreased [Unknown]
  - Haematocrit decreased [Unknown]
  - Thrombotic microangiopathy [Unknown]
  - Aspartate aminotransferase decreased [Unknown]
  - Carbon dioxide decreased [Unknown]
  - Constipation [Unknown]
  - Pyrexia [Unknown]
  - Pancreatitis [Unknown]
  - Malabsorption [Unknown]
  - Oral disorder [Unknown]
  - Blood urea increased [Unknown]
  - Hyperkalaemia [Unknown]
  - Kidney fibrosis [Unknown]
  - Arteriosclerosis [Unknown]
  - Blood phosphorus decreased [Unknown]
  - Hypertension [Unknown]
  - Blood creatinine increased [Unknown]
  - Blood cholesterol increased [Unknown]
  - Blood triglycerides increased [Unknown]
  - Staphylococcal infection [Unknown]
  - Renal atrophy [Unknown]
  - Red blood cell count decreased [Unknown]
  - Klebsiella infection [Unknown]
  - Intestinal transit time decreased [Unknown]

NARRATIVE: CASE EVENT DATE: 2018
